FAERS Safety Report 5256327-7 (Version None)
Quarter: 2007Q1

REPORT INFORMATION
  Report Type: 
  Country: None (occurrence: None)
  Receive Date: 20070306
  Receipt Date: 20070221
  Transmission Date: 20070707
  Serious: Yes (Death, Hospitalization)
  Sender: FDA-Public Use
  Company Number: DE-BAYER-200610799BVD

PATIENT
  Age: 51 Year
  Sex: Female

DRUGS (33)
  1. SORAFENIB [Suspect]
     Route: 048
     Dates: start: 20060116, end: 20060616
  2. ENALAPRIL MALEATE [Concomitant]
     Indication: HYPERTENSION
     Dates: start: 20051121, end: 20060119
  3. NOVALGIN [Concomitant]
     Indication: CANCER PAIN
     Dates: start: 20051101, end: 20060119
  4. NOVALGIN [Concomitant]
     Dates: start: 20060228, end: 20060313
  5. NOVALGIN [Concomitant]
     Dates: start: 20060621, end: 20060713
  6. PASPERTIN [Concomitant]
     Indication: NAUSEA
     Dates: start: 20051101, end: 20060713
  7. PASPERTIN [Concomitant]
     Dates: start: 20060621, end: 20060713
  8. LORAZEPAM [Concomitant]
     Indication: SEDATION
     Dates: start: 20050101, end: 20060119
  9. LORAZEPAM [Concomitant]
     Dates: start: 20060621, end: 20060713
  10. METOPROLOL SUCCINATE [Concomitant]
     Indication: HYPERTENSION
     Dates: start: 20060120, end: 20060313
  11. METOPROLOL SUCCINATE [Concomitant]
     Dates: start: 20060314, end: 20060620
  12. METOPROLOL SUCCINATE [Concomitant]
     Dates: start: 20060621, end: 20060704
  13. ZOMETA [Concomitant]
     Dates: start: 20060116, end: 20060713
  14. MOVICOL [Concomitant]
     Indication: CONSTIPATION
     Dates: start: 20060210, end: 20060313
  15. AMPHO MORONAL [Concomitant]
     Dates: start: 20060213, end: 20060227
  16. IBUPROFEN [Concomitant]
     Indication: MUSCULOSKELETAL PAIN
     Dates: start: 20060427, end: 20060620
  17. MUSARIL [Concomitant]
     Indication: MUSCULOSKELETAL PAIN
     Dates: start: 20060623, end: 20060713
  18. MSI [Concomitant]
     Indication: MUSCULOSKELETAL PAIN
     Dates: start: 20060623, end: 20060713
  19. DURAGESIC-100 [Concomitant]
     Indication: MUSCULOSKELETAL PAIN
     Dates: start: 20060627, end: 20060629
  20. DURAGESIC-100 [Concomitant]
     Dates: start: 20060630, end: 20060702
  21. DURAGESIC-100 [Concomitant]
     Dates: start: 20060703, end: 20060707
  22. DURAGESIC-100 [Concomitant]
     Dates: start: 20060708, end: 20060713
  23. PANTOZOL [Concomitant]
     Indication: PROPHYLAXIS
     Dates: start: 20060621, end: 20060713
  24. DECORTIN [Concomitant]
     Indication: GENERAL PHYSICAL HEALTH DETERIORATION
     Dates: start: 20060622, end: 20060713
  25. MAGNETRANS [Concomitant]
     Indication: MUSCULOSKELETAL PAIN
     Dates: start: 20060621, end: 20060713
  26. KALINOR [Concomitant]
     Indication: MUSCULOSKELETAL PAIN
     Dates: start: 20060624, end: 20060713
  27. ROCEPHIN [Concomitant]
     Dates: start: 20060621, end: 20060703
  28. SODIUM CHLORIDE 0.9% [Concomitant]
     Indication: GENERAL PHYSICAL HEALTH DETERIORATION
     Dates: start: 20060621, end: 20060704
  29. SODIUM CHLORIDE 0.9% [Concomitant]
     Dates: start: 20060705, end: 20060706
  30. DEXTROSE 5% [Concomitant]
     Indication: GENERAL PHYSICAL HEALTH DETERIORATION
     Dates: start: 20060621, end: 20060704
  31. DEXTROSE 5% [Concomitant]
     Dates: start: 20060705, end: 20060706
  32. VOMEX [Concomitant]
     Indication: VOMITING
     Dates: start: 20060622, end: 20060713
  33. LASIX [Concomitant]
     Indication: OEDEMA
     Dates: start: 20060626, end: 20060713

REACTIONS (11)
  - ANOREXIA [None]
  - BURN OF INTERNAL ORGANS [None]
  - CONSTIPATION [None]
  - ERYTHEMA MULTIFORME [None]
  - GENERAL PHYSICAL HEALTH DETERIORATION [None]
  - NAUSEA [None]
  - OEDEMA [None]
  - PAIN [None]
  - PAIN IN EXTREMITY [None]
  - VOMITING [None]
  - WEIGHT DECREASED [None]
